FAERS Safety Report 8877555 (Version 2)
Quarter: 2012Q4

REPORT INFORMATION
  Report Type: 
  Country: US (occurrence: US)
  Receive Date: 20121024
  Receipt Date: 20121123
  Transmission Date: 20130627
  Serious: Yes (Hospitalization, Other)
  Sender: FDA-Public Use
  Company Number: US-PFIZER INC-2012264537

PATIENT
  Age: 50 Year
  Sex: Male
  Weight: 74.83 kg

DRUGS (5)
  1. PRISTIQ [Suspect]
     Indication: DEPRESSION
     Dosage: 150 mg, daily
     Route: 048
     Dates: start: 20110113
  2. PRISTIQ [Interacting]
     Indication: MAJOR DEPRESSION
  3. ABILIFY [Interacting]
     Indication: DEPRESSION
     Dosage: 2.5 mg, daily
  4. ABILIFY [Interacting]
     Indication: MAJOR DEPRESSIVE DISORDER NOS
     Dosage: 5 mg, daily
     Route: 048
     Dates: start: 20121031
  5. ABILIFY [Interacting]
     Indication: PSYCHOTIC

REACTIONS (4)
  - Suicide attempt [Unknown]
  - Suicidal ideation [Recovered/Resolved]
  - Drug interaction [Unknown]
  - Depression [Unknown]
